FAERS Safety Report 5201901-7 (Version None)
Quarter: 2006Q4

REPORT INFORMATION
  Report Type: 
  Country: None (occurrence: None)
  Receive Date: 20061010
  Receipt Date: 20060202
  Transmission Date: 20070319
  Serious: Yes (Other)
  Sender: FDA-Public Use
  Company Number: 2006-02-0181

PATIENT

DRUGS (1)
  1. TEMODAR [Suspect]
     Indication: BRAIN NEOPLASM
     Dosage: ORAL, 2 CYCLE
     Route: 048

REACTIONS (2)
  - PANCYTOPENIA [None]
  - URINARY TRACT INFECTION [None]
